FAERS Safety Report 16599201 (Version 1)
Quarter: 2019Q3

REPORT INFORMATION
  Report Type: Spontaneous
  Country: FR (occurrence: FR)
  Receive Date: 20190719
  Receipt Date: 20190719
  Transmission Date: 20191004
  Serious: Yes (Hospitalization)
  Sender: FDA-Public Use
  Company Number: FR-009507513-1907FRA004837

PATIENT
  Age: 85 Year
  Sex: Male

DRUGS (14)
  1. MIANSERIN HYDROCHLORIDE [Concomitant]
     Active Substance: MIANSERIN HYDROCHLORIDE
  2. SIMVASTATIN. [Suspect]
     Active Substance: SIMVASTATIN
     Indication: PRESCRIPTION DRUG USED WITHOUT A PRESCRIPTION
     Dosage: 10 MG - SINGLE DOSE
     Route: 048
     Dates: start: 20190620, end: 20190620
  3. TAMSULOSIN HYDROCHLORIDE. [Concomitant]
     Active Substance: TAMSULOSIN HYDROCHLORIDE
  4. MOVICOL [Concomitant]
     Active Substance: POLYETHYLENE GLYCOL 3350\POTASSIUM CHLORIDE\SODIUM BICARBONATE\SODIUM CHLORIDE
  5. LOXAPAC (LOXAPINE SUCCINATE) [Suspect]
     Active Substance: LOXAPINE SUCCINATE
     Indication: PRESCRIPTION DRUG USED WITHOUT A PRESCRIPTION
     Dosage: 30 DROPS - SINGLE DOSE (DROP (1/12 MILLILITRE))
     Route: 048
     Dates: start: 20190620, end: 20190620
  6. TRAMADOL HYDROCHLORIDE. [Concomitant]
     Active Substance: TRAMADOL HYDROCHLORIDE
  7. VALPROATE SODIUM. [Suspect]
     Active Substance: VALPROATE SODIUM
     Indication: PRESCRIPTION DRUG USED WITHOUT A PRESCRIPTION
     Dosage: 750 MG -  SINGLE DOSE
     Route: 048
     Dates: start: 20190620, end: 20190620
  8. KARDEGIC [Concomitant]
     Active Substance: ASPIRIN DL-LYSINE
  9. AMIODARONE HYDROCHLORIDE. [Concomitant]
     Active Substance: AMIODARONE HYDROCHLORIDE
  10. OLANZAPINE. [Suspect]
     Active Substance: OLANZAPINE
     Indication: PRESCRIPTION DRUG USED WITHOUT A PRESCRIPTION
     Dosage: 20 DROPS -  SINGLE DOSE (DROP (1/12 MILLILITRE))
     Route: 048
     Dates: start: 20190620, end: 20190620
  11. SERESTA [Suspect]
     Active Substance: OXAZEPAM
     Indication: PRESCRIPTION DRUG USED WITHOUT A PRESCRIPTION
     Dosage: 50 MG - SINGLE DOSE
     Route: 048
     Dates: start: 20190620, end: 20190620
  12. LANSOPRAZOLE. [Concomitant]
     Active Substance: LANSOPRAZOLE
  13. RISPERIDONE. [Concomitant]
     Active Substance: RISPERIDONE
  14. ACETAMINOPHEN. [Concomitant]
     Active Substance: ACETAMINOPHEN

REACTIONS (2)
  - Wrong patient received product [Recovered/Resolved]
  - Somnolence [Recovered/Resolved]

NARRATIVE: CASE EVENT DATE: 20190620
